FAERS Safety Report 6237758-5 (Version None)
Quarter: 2009Q2

REPORT INFORMATION
  Report Type: 
  Country: None (occurrence: None)
  Receive Date: 20090618
  Receipt Date: 20090608
  Transmission Date: 20091009
  Serious: Yes (Hospitalization)
  Sender: FDA-Public Use
  Company Number: GXBR2009US00950

PATIENT
  Age: 13 Year
  Sex: Female
  Weight: 50.3 kg

DRUGS (2)
  1. AMITRIPTYLINE HCL [Suspect]
     Indication: MIGRAINE PROPHYLAXIS
     Dosage: 10 MG, QHS, ORAL
     Route: 048
     Dates: start: 20071127, end: 20090327
  2. LURIDE (SODIUM FLUORIDE) [Concomitant]

REACTIONS (18)
  - ABASIA [None]
  - BLOOD CREATINE PHOSPHOKINASE DECREASED [None]
  - CONVERSION DISORDER [None]
  - ELECTROCARDIOGRAM QT PROLONGED [None]
  - EPSTEIN-BARR VIRUS ANTIBODY [None]
  - FACTITIOUS DISORDER [None]
  - FATIGUE [None]
  - FEEDING DISORDER [None]
  - GRIP STRENGTH DECREASED [None]
  - HEADACHE [None]
  - LYMPHADENOPATHY [None]
  - LYMPHOCYTE COUNT INCREASED [None]
  - MUSCULAR WEAKNESS [None]
  - NASAL CONGESTION [None]
  - PYREXIA [None]
  - SOMNOLENCE [None]
  - TREATMENT NONCOMPLIANCE [None]
  - URINARY RETENTION [None]
